FAERS Safety Report 7767105-9 (Version None)
Quarter: 2011Q3

REPORT INFORMATION
  Report Type: 
  Country: None (occurrence: None)
  Receive Date: 20110922
  Receipt Date: 20110124
  Transmission Date: 20111222
  Serious: No
  Sender: FDA-Public Use
  Company Number: US-ASTRAZENECA-2011SE04326

PATIENT
  Age: 59 Year
  Sex: Female

DRUGS (2)
  1. CYMBALTA [Concomitant]
  2. SEROQUEL XR [Suspect]
     Indication: MENTAL IMPAIRMENT
     Route: 048

REACTIONS (2)
  - EAR INFECTION [None]
  - WRONG TECHNIQUE IN DRUG USAGE PROCESS [None]
